FAERS Safety Report 6613528-0 (Version None)
Quarter: 2010Q1

REPORT INFORMATION
  Report Type: 
  Country: None (occurrence: None)
  Receive Date: 20100225
  Receipt Date: 20100211
  Transmission Date: 20100710
  Serious: Yes (Death, Other)
  Sender: FDA-Public Use
  Company Number: JHP201000067

PATIENT

DRUGS (1)
  1. COLY-MYCIN M [Suspect]
     Indication: MULTIPLE-DRUG RESISTANCE
     Dosage: INTRAVENOUS
     Route: 042

REACTIONS (4)
  - MULTI-ORGAN FAILURE [None]
  - NEPHROPATHY TOXIC [None]
  - RENAL FAILURE [None]
  - SEPTIC SHOCK [None]
